FAERS Safety Report 14696088 (Version 3)
Quarter: 2018Q2

REPORT INFORMATION
  Report Type: Report from Study
  Country: US (occurrence: US)
  Receive Date: 20180329
  Receipt Date: 20180416
  Transmission Date: 20180711
  Serious: Yes (Hospitalization, Other)
  Sender: FDA-Public Use
  Company Number: US-GILEAD-2018-0329438

PATIENT
  Age: 60 Year
  Sex: Male

DRUGS (1)
  1. RANOLAZINE. [Suspect]
     Active Substance: RANOLAZINE
     Indication: ANGINA PECTORIS
     Dosage: 1000 MG, BID
     Route: 048

REACTIONS (12)
  - Suicidal ideation [Not Recovered/Not Resolved]
  - Cerebral haemorrhage [Unknown]
  - Stent placement [Unknown]
  - Self-medication [Unknown]
  - Thrombosis [Unknown]
  - Fatigue [Unknown]
  - Depression [Unknown]
  - Substance abuse [Unknown]
  - Dependence [Unknown]
  - Drug dose omission [Not Recovered/Not Resolved]
  - Vascular graft [Unknown]
  - Asthenia [Unknown]

NARRATIVE: CASE EVENT DATE: 20171101
